FAERS Safety Report 8602932-7 (Version None)
Quarter: 2012Q3

REPORT INFORMATION
  Report Type: 
  Country: None (occurrence: None)
  Receive Date: 20120817
  Receipt Date: 20120807
  Transmission Date: 20120928
  Serious: Yes (Hospitalization)
  Sender: FDA-Public Use
  Company Number: CN-B.I. PHARMACEUTICALS,INC./RIDGEFIELD-2012-BP-19334BP

PATIENT
  Sex: Female
  Weight: 45 kg

DRUGS (3)
  1. MELOXICAM [Suspect]
     Indication: INFECTION
  2. MELOXICAM [Suspect]
     Indication: PAIN
     Dosage: 7.5 MG
     Route: 048
     Dates: start: 20110817, end: 20110820
  3. CHLORZOXAZONE [Suspect]
     Indication: FASCIITIS
     Route: 048
     Dates: start: 20110817, end: 20110820

REACTIONS (1)
  - ERYTHEMA MULTIFORME [None]
